FAERS Safety Report 4707206-2 (Version None)
Quarter: 2005Q3

REPORT INFORMATION
  Report Type: 
  Country: None (occurrence: None)
  Receive Date: 20050701
  Receipt Date: 20050701
  Transmission Date: 20060218
  Serious: No
  Sender: FDA-Public Use
  Company Number: None

PATIENT
  Age: 69 Year
  Sex: Female
  Weight: 81.6475 kg

DRUGS (2)
  1. ZOCOR [Suspect]
     Indication: BLOOD CHOLESTEROL INCREASED
     Dosage: 10MG    1 PER DAY    ORAL
     Route: 048
     Dates: start: 19990403, end: 20050630
  2. ZETIA [Suspect]
     Dosage: 10MG   1 PER DAY   ORAL
     Route: 048

REACTIONS (6)
  - ABASIA [None]
  - ARTHRALGIA [None]
  - MUSCLE ATROPHY [None]
  - MYALGIA [None]
  - NERVE DEGENERATION [None]
  - PAIN [None]
